FAERS Safety Report 10537261 (Version 2)
Quarter: 2014Q4

REPORT INFORMATION
  Report Type: Spontaneous
  Country: ZA (occurrence: ZA)
  Receive Date: 20141023
  Receipt Date: 20141029
  Transmission Date: 20150529
  Serious: Yes (Death, Hospitalization)
  Sender: FDA-Public Use
  Company Number: ZA-MERCK-1410ZAF010786

PATIENT
  Age: 9 Year
  Sex: Male

DRUGS (1)
  1. CANCIDAS [Suspect]
     Active Substance: CASPOFUNGIN ACETATE
     Indication: PNEUMONIA
     Dosage: UNK
     Dates: start: 201403, end: 201403

REACTIONS (3)
  - Hospitalisation [Unknown]
  - Death [Fatal]
  - Nosocomial infection [Recovered/Resolved]

NARRATIVE: CASE EVENT DATE: 2014
